FAERS Safety Report 8967349 (Version 1)
Quarter: 2012Q4

REPORT INFORMATION
  Report Type: 
  Country: UA (occurrence: UA)
  Receive Date: 20121214
  Receipt Date: 20121214
  Transmission Date: 20130627
  Serious: Yes (Other)
  Sender: FDA-Public Use
  Company Number: PHHY2012UA115316

PATIENT
  Age: 63 Year
  Sex: Female

DRUGS (1)
  1. RETARPEN [Suspect]
     Indication: RHEUMATIC HEART DISEASE
     Dosage: 2400000 IU once/21 days
     Route: 030
     Dates: start: 20090919

REACTIONS (6)
  - Extrasystoles [Recovered/Resolved]
  - Palpitations [Recovered/Resolved]
  - Dizziness [Recovered/Resolved]
  - Urine output increased [Recovered/Resolved]
  - Abdominal pain upper [Recovered/Resolved]
  - Nausea [Recovered/Resolved]
